FAERS Safety Report 5426321-1 (Version None)
Quarter: 2007Q3

REPORT INFORMATION
  Report Type: 
  Country: None (occurrence: None)
  Receive Date: 20070827
  Receipt Date: 20070823
  Transmission Date: 20080115
  Serious: Yes (Other)
  Sender: FDA-Public Use
  Company Number: AT-AMGEN-US240203

PATIENT
  Sex: Female
  Weight: 63 kg

DRUGS (5)
  1. ENBREL [Suspect]
     Indication: RHEUMATOID ARTHRITIS
     Route: 058
     Dates: start: 20070215
  2. PANTOPRAZOLE SODIUM [Concomitant]
  3. MARCUMAR [Concomitant]
  4. EU-MED [Concomitant]
  5. TEBOFORTAN [Concomitant]

REACTIONS (1)
  - DRUG INEFFECTIVE [None]
